FAERS Safety Report 15966333 (Version 1)
Quarter: 2019Q1

REPORT INFORMATION
  Report Type: Spontaneous
  Country: US (occurrence: US)
  Receive Date: 20190124
  Receipt Date: 20190124
  Transmission Date: 20190418
  Serious: Yes (Other)
  Sender: FDA-Public Use
  Company Number: None

PATIENT

DRUGS (1)
  1. METFORMIN HCL 100MG [Suspect]
     Active Substance: METFORMIN HYDROCHLORIDE
     Indication: TYPE 2 DIABETES MELLITUS
     Dosage: ?          QUANTITY:2 PILLS;?
     Route: 048
     Dates: start: 201806, end: 201812

REACTIONS (2)
  - Diarrhoea [None]
  - Intentional product use issue [None]

NARRATIVE: CASE EVENT DATE: 201806
